FAERS Safety Report 9519850 (Version 3)
Quarter: 2013Q3

REPORT INFORMATION
  Report Type: Report from Study
  Country: DE (occurrence: DE)
  Receive Date: 20130912
  Receipt Date: 20130924
  Transmission Date: 20140515
  Serious: Yes (Hospitalization)
  Sender: FDA-Public Use
  Company Number: DE-ROCHE-1231606

PATIENT
  Age: 60 Year
  Sex: Female
  Weight: 78 kg

DRUGS (5)
  1. TRASTUZUMAB [Suspect]
     Indication: HER-2 POSITIVE BREAST CANCER
     Dosage: LOADING DOSE
     Route: 042
     Dates: start: 20120719
  2. TRASTUZUMAB [Suspect]
     Dosage: MAINTENANCE DOSE?DATE OF LAST DOSE PRIOR TO SAE LARYNGITIS: 11/APR/2013?DATE OF LAST DOSE PRIOR TO S
     Route: 042
     Dates: start: 20120809, end: 20130523
  3. PARACETAMOL [Concomitant]
     Route: 065
     Dates: start: 20130423, end: 20130424
  4. PERTUZUMAB [Suspect]
     Indication: HER-2 POSITIVE BREAST CANCER
     Dosage: LOADING DOSE
     Route: 042
     Dates: start: 20120719
  5. PERTUZUMAB [Suspect]
     Dosage: MAINTENANCE DOSE?DATE OF LAST DOSE PRIOR TO SAE LARYNGITIS: 11/APR/2013?DATE OF LAST DOSE PRIOR TO S
     Route: 042
     Dates: start: 20120809, end: 20130523

REACTIONS (2)
  - Laryngitis [Not Recovered/Not Resolved]
  - Pulmonary fibrosis [Not Recovered/Not Resolved]
